FAERS Safety Report 10202413 (Version 4)
Quarter: 2014Q2

REPORT INFORMATION
  Report Type: Spontaneous
  Country: IT (occurrence: IT)
  Receive Date: 20140528
  Receipt Date: 20140612
  Transmission Date: 20141212
  Serious: Yes (Hospitalization)
  Sender: FDA-Public Use
  Company Number: IT-TEVA-482531ISR

PATIENT
  Age: 81 Year
  Sex: Female

DRUGS (1)
  1. CEFTRIAXONE DISODIUM [Suspect]
     Indication: PNEUMONITIS
     Dosage: 2 GRAM DAILY;
     Route: 042
     Dates: start: 20140214

REACTIONS (4)
  - Hypotension [Recovered/Resolved]
  - Oxygen saturation decreased [Recovered/Resolved]
  - Respiratory arrest [Recovered/Resolved]
  - Hypersensitivity [Recovered/Resolved]
